FAERS Safety Report 11064503 (Version 3)
Quarter: 2015Q2

REPORT INFORMATION
  Report Type: Spontaneous
  Country: US (occurrence: US)
  Receive Date: 20150424
  Receipt Date: 20150605
  Transmission Date: 20150821
  Serious: No
  Sender: FDA-Public Use
  Company Number: US-PFIZER INC-2015136845

PATIENT
  Age: 58 Year
  Sex: Female
  Weight: 83 kg

DRUGS (2)
  1. PREMARIN [Suspect]
     Active Substance: ESTROGENS, CONJUGATED
     Indication: VULVOVAGINAL PAIN
     Dosage: ONE PEA SIZED AMOUNT
     Dates: start: 20150416, end: 20150416
  2. METFORMIN [Concomitant]
     Active Substance: METFORMIN HYDROCHLORIDE
     Dosage: 500 MG, DAILY
     Route: 048

REACTIONS (3)
  - Proctalgia [Not Recovered/Not Resolved]
  - Vulvovaginal burning sensation [Recovering/Resolving]
  - Anal pruritus [Not Recovered/Not Resolved]

NARRATIVE: CASE EVENT DATE: 20150416
